FAERS Safety Report 7001236-6 (Version None)
Quarter: 2010Q3

REPORT INFORMATION
  Report Type: 
  Country: None (occurrence: None)
  Receive Date: 20100920
  Receipt Date: 20091207
  Transmission Date: 20110219
  Serious: No
  Sender: FDA-Public Use
  Company Number: US-ASTRAZENECA-2007UW13886

PATIENT
  Age: 16 Year
  Sex: Female

DRUGS (7)
  1. SEROQUEL [Suspect]
     Indication: SCHIZOPHRENIA
     Route: 048
     Dates: start: 20060101
  2. RISPERIDONE [Concomitant]
  3. LITHIUM [Concomitant]
  4. TOPIRAMATE [Concomitant]
  5. TRAMADOL [Concomitant]
  6. VENLAGAZINE [Concomitant]
  7. HEXACHOLESTEROLPHENE [Concomitant]

REACTIONS (2)
  - GLUCOSE TOLERANCE IMPAIRED [None]
  - WEIGHT INCREASED [None]
